FAERS Safety Report 16091273 (Version 1)
Quarter: 2019Q1

REPORT INFORMATION
  Report Type: Report from Study
  Country: AU (occurrence: AU)
  Receive Date: 20190319
  Receipt Date: 20190319
  Transmission Date: 20190418
  Serious: Yes (Other)
  Sender: FDA-Public Use
  Company Number: AU-MYLANLABS-2019M1025041

PATIENT
  Sex: Female

DRUGS (3)
  1. BNC105P [Suspect]
     Active Substance: INVESTIGATIONAL PRODUCT
     Indication: OVARIAN CANCER
     Dosage: 12 MG/M2 OVER 10 MINUTES ON DAY 2 AND 9, 24 HOURS AFTER GEMCITABINE IN COMBINATION TREATMENT, AND...
     Route: 042
  2. CARBOPLATIN. [Suspect]
     Active Substance: CARBOPLATIN
     Indication: OVARIAN CANCER
     Dosage: AUC4 ON DAY 1 OVER 60 MINUTES (AT DOSE LEVEL 1)
     Route: 042
  3. GEMCITABINE [Suspect]
     Active Substance: GEMCITABINE\GEMCITABINE HYDROCHLORIDE
     Indication: OVARIAN CANCER
     Dosage: 800 MG/M2 ON DAY 1 AND 8 OVER 30 MINUTES (AT DOSE LEVEL 1)
     Route: 042

REACTIONS (1)
  - Hypertension [Unknown]
